FAERS Safety Report 13665192 (Version 1)
Quarter: 2017Q2

REPORT INFORMATION
  Report Type: Spontaneous
  Country: DE (occurrence: DE)
  Receive Date: 20170619
  Receipt Date: 20170619
  Transmission Date: 20170830
  Serious: Yes (Life-Threatening, Hospitalization, Other)
  Sender: FDA-Public Use
  Company Number: DE-BRISTOL-MYERS SQUIBB COMPANY-BMS-2017-053615

PATIENT
  Age: 50 Year
  Sex: Male

DRUGS (1)
  1. ABATACEPT [Suspect]
     Active Substance: ABATACEPT
     Indication: PRODUCT USED FOR UNKNOWN INDICATION
     Route: 065

REACTIONS (6)
  - Systemic inflammatory response syndrome [Unknown]
  - Continuous haemodiafiltration [Unknown]
  - Epstein-Barr virus infection [Unknown]
  - Histiocytosis haematophagic [Unknown]
  - Hodgkin^s disease [Unknown]
  - Product use in unapproved indication [Unknown]
